FAERS Safety Report 21850443 (Version 2)
Quarter: 2023Q1

REPORT INFORMATION
  Report Type: Report from Study
  Country: JP (occurrence: JP)
  Receive Date: 20230111
  Receipt Date: 20230131
  Transmission Date: 20230418
  Serious: Yes (Hospitalization)
  Sender: FDA-Public Use
  Company Number: JP-SEATTLE GENETICS-2023SGN00042

PATIENT
  Age: 73 Year
  Sex: Male
  Weight: 58 kg

DRUGS (19)
  1. TUCATINIB [Suspect]
     Active Substance: TUCATINIB
     Indication: Gallbladder cancer
     Dosage: 150 MG, BID
     Route: 048
     Dates: start: 20221111, end: 20230125
  2. TUCATINIB [Suspect]
     Active Substance: TUCATINIB
     Dosage: 300 MG, BID
     Route: 048
     Dates: start: 20220426, end: 20220523
  3. TUCATINIB [Suspect]
     Active Substance: TUCATINIB
     Dosage: 250 MG, BID
     Route: 048
     Dates: start: 20220524, end: 20221024
  4. TUCATINIB [Suspect]
     Active Substance: TUCATINIB
     Dosage: 200 MG, BID
     Route: 048
     Dates: start: 20221025, end: 20221110
  5. TRASTUZUMAB [Suspect]
     Active Substance: TRASTUZUMAB
     Indication: Gallbladder cancer
     Dosage: 6 MG/KG, SUBSEQUENT CYCLES, OVER 30 MINUTES ON DAY 1 OF EACH CYCLE
     Route: 042
  6. TRASTUZUMAB [Suspect]
     Active Substance: TRASTUZUMAB
     Dosage: 8 MG/KG, SINGLE, OVER 90 MINUTES ON DAY 1 OF CYCLE 1
     Route: 042
     Dates: start: 20220426, end: 20220426
  7. TRASTUZUMAB [Suspect]
     Active Substance: TRASTUZUMAB
     Dosage: UNK
     Route: 042
  8. TRASTUZUMAB [Suspect]
     Active Substance: TRASTUZUMAB
     Dosage: UNK
     Route: 042
  9. LOPERAMIDE [Suspect]
     Active Substance: LOPERAMIDE
     Indication: Diarrhoea
     Dosage: 1 MG, AS NEEDED
     Dates: start: 20221112
  10. JANUVIA [Concomitant]
     Active Substance: SITAGLIPTIN PHOSPHATE
     Indication: Type 2 diabetes mellitus
     Dosage: 100 MG, QD
     Dates: start: 20220928
  11. METGLUCO [Concomitant]
     Active Substance: METFORMIN HYDROCHLORIDE
     Indication: Type 2 diabetes mellitus
     Dosage: 250 MG, TID
     Dates: start: 20220915
  12. BARACLUDE [Concomitant]
     Active Substance: ENTECAVIR
     Indication: Prophylaxis
     Dosage: 0.5 MG, QD
     Dates: start: 20220329
  13. BISOPROLOL FUMARATE [Concomitant]
     Active Substance: BISOPROLOL FUMARATE
     Indication: Prophylaxis
     Dosage: 5 MG, QD
     Dates: start: 20220814
  14. REBAMIPIDE [Concomitant]
     Active Substance: REBAMIPIDE
     Indication: Gastritis prophylaxis
     Dosage: 100 MG, TID
     Dates: start: 20220813
  15. ESOMEPRAZOLE [Concomitant]
     Active Substance: ESOMEPRAZOLE
     Indication: Gastritis prophylaxis
     Dosage: 20 MG, BID
     Dates: start: 20220813
  16. PREDNISOLONE [Concomitant]
     Active Substance: PREDNISOLONE
     Indication: Interstitial lung disease
     Dosage: 30 MG, QD
     Dates: start: 20221227
  17. SULFAMETHOXAZOLE\TRIMETHOPRIM [Concomitant]
     Active Substance: SULFAMETHOXAZOLE\TRIMETHOPRIM
     Indication: Prophylaxis
     Dosage: 1 TABLET QD
     Dates: start: 20221227
  18. REPAGLINIDE [Concomitant]
     Active Substance: REPAGLINIDE
     Indication: Type 2 diabetes mellitus
     Dosage: 0.5 MG, TID
     Dates: start: 20220912
  19. LEVOFLOXACIN HEMIHYDRATE [Concomitant]
     Active Substance: LEVOFLOXACIN
     Indication: Interstitial lung disease
     Dosage: 500 MG, QD
     Dates: start: 20221227

REACTIONS (2)
  - Interstitial lung disease [Recovering/Resolving]
  - COVID-19 [Recovering/Resolving]

NARRATIVE: CASE EVENT DATE: 20230104
